FAERS Safety Report 5771266-0 (Version None)
Quarter: 2008Q2

REPORT INFORMATION
  Report Type: 
  Country: None (occurrence: None)
  Receive Date: 20080612
  Receipt Date: 20080612
  Transmission Date: 20081010
  Serious: No
  Sender: FDA-Public Use
  Company Number: None

PATIENT
  Age: 47 Year
  Sex: Female

DRUGS (1)
  1. SARAFEM [Suspect]
     Dosage: TWO TABLETS BY MOUTH DAILY

REACTIONS (4)
  - DYSGEUSIA [None]
  - FOREIGN BODY TRAUMA [None]
  - PHARYNGEAL OEDEMA [None]
  - THROAT IRRITATION [None]
